FAERS Safety Report 8058548-7 (Version None)
Quarter: 2012Q1

REPORT INFORMATION
  Report Type: 
  Country: None (occurrence: None)
  Receive Date: 20120120
  Receipt Date: 20120118
  Transmission Date: 20120608
  Serious: Yes (Hospitalization)
  Sender: FDA-Public Use
  Company Number: ES-AMGEN-ESPSP2011015377

PATIENT
  Age: 79 Year
  Sex: Female

DRUGS (6)
  1. NEULASTA [Suspect]
     Indication: PROPHYLAXIS
     Dosage: 6 MG, QD
     Route: 058
     Dates: start: 20101022, end: 20101022
  2. TOPOTECAN [Suspect]
     Indication: LUNG NEOPLASM MALIGNANT
     Dosage: 1.2 MG, QD
     Route: 042
     Dates: start: 20101018, end: 20101022
  3. ACETAMINOPHEN [Concomitant]
     Indication: PAIN
     Dosage: UNK
     Dates: start: 20080301
  4. GRANISETRON HYDROCHLORIDE [Suspect]
     Indication: VOMITING
     Dosage: UNK MG/ML, UNK
     Route: 042
     Dates: start: 20101018, end: 20101022
  5. OMEPRAZOLE [Concomitant]
     Indication: PROPHYLAXIS
     Dosage: UNK
     Dates: start: 20101022
  6. DEXAMETHASONE TAB [Suspect]
     Indication: LUNG NEOPLASM MALIGNANT
     Dosage: 8 MG, QD
     Route: 042
     Dates: start: 20101018, end: 20101022

REACTIONS (1)
  - HEPATITIS CHOLESTATIC [None]
